FAERS Safety Report 8025129-0 (Version None)
Quarter: 2012Q1

REPORT INFORMATION
  Report Type: 
  Country: None (occurrence: None)
  Receive Date: 20120105
  Receipt Date: 20111230
  Transmission Date: 20120608
  Serious: Yes (Hospitalization)
  Sender: FDA-Public Use
  Company Number: US-ROCHE-1026556

PATIENT
  Sex: Female
  Weight: 70.29 kg

DRUGS (11)
  1. LYRICA [Concomitant]
     Route: 065
     Dates: start: 20110227
  2. HYPROLOSE [Concomitant]
     Route: 065
  3. MIRALAX [Concomitant]
     Route: 065
     Dates: start: 20110828
  4. XELODA [Suspect]
     Indication: BREAST CANCER METASTATIC
     Route: 048
     Dates: start: 20111128
  5. RAMUCIRUMAB [Suspect]
     Indication: BREAST CANCER METASTATIC
     Route: 042
     Dates: start: 20111207
  6. EFFEXOR [Concomitant]
     Route: 065
     Dates: start: 20110227
  7. LACRISERT [Concomitant]
     Route: 065
     Dates: start: 20111011
  8. FLUORIDE [Concomitant]
     Dates: start: 20111107
  9. LUNESTA [Concomitant]
     Route: 065
     Dates: start: 20110227
  10. TRAZODONE HCL [Concomitant]
     Route: 065
     Dates: start: 20110227
  11. VITAMIN B-12 [Concomitant]
     Dates: start: 20111101

REACTIONS (2)
  - DYSPNOEA [None]
  - HYPOTHYROIDISM [None]
